FAERS Safety Report 6221864-5 (Version None)
Quarter: 2009Q2

REPORT INFORMATION
  Report Type: 
  Country: None (occurrence: None)
  Receive Date: 20090611
  Receipt Date: 20070921
  Transmission Date: 20091009
  Serious: Yes (Hospitalization, Other)
  Sender: FDA-Public Use
  Company Number: US-ASTRAZENECA-2006UW23029

PATIENT
  Age: 30 Year
  Sex: Female
  Weight: 110.7 kg

DRUGS (33)
  1. SEROQUEL [Suspect]
     Indication: BIPOLAR DISORDER
     Route: 048
  2. SEROQUEL [Suspect]
     Indication: SCHIZOPHRENIA
     Route: 048
  3. SEROQUEL [Suspect]
     Indication: ANXIETY
     Route: 048
  4. SEROQUEL [Suspect]
     Indication: AFFECTIVE DISORDER
     Route: 048
  5. SEROQUEL [Suspect]
     Dosage: 100-800 MG
     Route: 048
     Dates: start: 20010907
  6. SEROQUEL [Suspect]
     Dosage: 100-800 MG
     Route: 048
     Dates: start: 20010907
  7. SEROQUEL [Suspect]
     Dosage: 100-800 MG
     Route: 048
     Dates: start: 20010907
  8. SEROQUEL [Suspect]
     Dosage: 100-800 MG
     Route: 048
     Dates: start: 20010907
  9. HALDOL [Concomitant]
  10. HALDOL [Concomitant]
     Dosage: 2-5 MG
     Dates: start: 20010910
  11. RISPERDAL [Concomitant]
  12. RISPERDAL [Concomitant]
     Dates: start: 19990920
  13. ZYPREXA /SYMBYAX (OLANZAPINE) [Concomitant]
  14. ZYPREXA /SYMBYAX (OLANZAPINE) [Concomitant]
     Dosage: 5-15 MG
     Dates: start: 19990920
  15. DILANTIN [Concomitant]
     Dosage: 100-400 MG
     Dates: start: 20031116
  16. NORVASC [Concomitant]
     Route: 048
     Dates: start: 20040917
  17. LEXAPRO [Concomitant]
     Dates: start: 20040430
  18. COGENTIN [Concomitant]
     Dates: start: 20020911
  19. DIPHENHYDRAMINE HCL [Concomitant]
     Dates: start: 20010910
  20. METHYLPREDNISOLONE [Concomitant]
     Dates: start: 20040414
  21. TEGRETOL [Concomitant]
     Dates: start: 20031029
  22. PROZAC [Concomitant]
     Dosage: 20-40 MG
     Route: 048
     Dates: start: 20010908
  23. PREDNISONE [Concomitant]
     Dates: start: 20030630
  24. SINGULAIR [Concomitant]
     Dates: start: 20030724
  25. WELLBUTRIN [Concomitant]
     Dates: start: 20030812
  26. LIPITOR [Concomitant]
     Dates: start: 20050420
  27. COMBIVENT [Concomitant]
     Dosage: 2 PUFFS A DAY
     Dates: start: 20030929
  28. ATENOLOL [Concomitant]
     Dates: start: 20041204
  29. DARVOCET [Concomitant]
     Route: 048
     Dates: start: 20041206
  30. ADVAIR DISKUS 100/50 [Concomitant]
     Dosage: 2 PUFFS DAILY
     Dates: start: 20051205
  31. ATARAX [Concomitant]
     Route: 048
     Dates: start: 20050206
  32. NITROSTAT [Concomitant]
     Route: 060
     Dates: start: 20050204
  33. ZOLPIDEM TARTRATE [Concomitant]
     Route: 048
     Dates: start: 20050204

REACTIONS (6)
  - CEREBROVASCULAR ACCIDENT [None]
  - DIABETES MELLITUS INADEQUATE CONTROL [None]
  - DIABETIC COMPLICATION [None]
  - GLUCOSE TOLERANCE IMPAIRED [None]
  - HYPERGLYCAEMIA [None]
  - TYPE 2 DIABETES MELLITUS [None]
